FAERS Safety Report 6084589-5 (Version None)
Quarter: 2009Q1

REPORT INFORMATION
  Report Type: 
  Country: None (occurrence: None)
  Receive Date: 20090219
  Receipt Date: 20090213
  Transmission Date: 20090719
  Serious: Yes (Other)
  Sender: FDA-Public Use
  Company Number: US-B.I. PHARMACEUTICALS,INC./RIDGEFIELD-2009-BP-01937BP

PATIENT
  Sex: Female

DRUGS (6)
  1. SPIRIVA [Suspect]
     Indication: CHRONIC OBSTRUCTIVE PULMONARY DISEASE
     Dosage: 18MCG
     Route: 055
     Dates: start: 20050101
  2. TARKA [Concomitant]
     Indication: HYPERTENSION
     Route: 048
     Dates: start: 20040101
  3. B12 VITAMIN [Concomitant]
     Indication: FATIGUE
     Dates: start: 20030101
  4. XANAX [Concomitant]
     Indication: ANXIETY
     Dosage: .5MG
     Route: 048
     Dates: start: 20070101
  5. B50 [Concomitant]
     Indication: VITAMIN SUPPLEMENTATION
  6. CENTRUM VITAMIN [Concomitant]
     Indication: VITAMIN SUPPLEMENTATION

REACTIONS (4)
  - BENIGN NEOPLASM OF THYROID GLAND [None]
  - BRAIN NEOPLASM [None]
  - DYSPNOEA [None]
  - LIVER DISORDER [None]
